FAERS Safety Report 23983330 (Version 1)
Quarter: 2024Q2

REPORT INFORMATION
  Report Type: Spontaneous
  Country: JP (occurrence: JP)
  Receive Date: 20240617
  Receipt Date: 20240617
  Transmission Date: 20240716
  Serious: Yes (Death)
  Sender: FDA-Public Use
  Company Number: JP-002147023-NVSJ2024JP007222

PATIENT
  Age: 60 Year
  Sex: Male

DRUGS (1)
  1. SIMULECT [Suspect]
     Active Substance: BASILIXIMAB
     Indication: Product used for unknown indication
     Dosage: UNK
     Route: 042

REACTIONS (1)
  - Adult T-cell lymphoma/leukaemia [Fatal]
